FAERS Safety Report 19834773 (Version 4)
Quarter: 2022Q4

REPORT INFORMATION
  Report Type: Spontaneous
  Country: JP (occurrence: JP)
  Receive Date: 20210915
  Receipt Date: 20221005
  Transmission Date: 20230112
  Serious: Yes (Other)
  Sender: FDA-Public Use
  Company Number: JP-ORPHANEU-2021003748

PATIENT

DRUGS (15)
  1. CARBAGLU [Suspect]
     Active Substance: CARGLUMIC ACID
     Indication: Methylmalonic aciduria
     Dosage: 167 MG/KG, DAILY
  2. CARBAGLU [Suspect]
     Active Substance: CARGLUMIC ACID
     Dosage: 93 MG/KG, DAILY
  3. CARBAGLU [Suspect]
     Active Substance: CARGLUMIC ACID
     Dosage: 59 MG/KG, DAILY
  4. L-CARNITINE [LEVOCARNITINE HYDROCHLORIDE] [Concomitant]
     Indication: Methylmalonic aciduria
     Dosage: 200 MG/KG/DAY
  5. L-CARNITINE [LEVOCARNITINE HYDROCHLORIDE] [Concomitant]
     Dosage: 150 MG/KG/DAY
  6. CYANOCOBALAMIN [Concomitant]
     Active Substance: CYANOCOBALAMIN
     Indication: Methylmalonic aciduria
     Dosage: UNK
  7. ARGININE [Concomitant]
     Active Substance: ARGININE
     Indication: Methylmalonic aciduria
     Dosage: 17MG/KG/HOUR
  8. SODIUM BENZOATE [Concomitant]
     Active Substance: SODIUM BENZOATE
     Indication: Methylmalonic aciduria
     Dosage: 13MG/KG/HOUR
  9. VITAMIN B1 [Concomitant]
     Active Substance: THIAMINE HYDROCHLORIDE
     Indication: Product used for unknown indication
  10. VITAMIN B6 [Concomitant]
     Active Substance: PYRIDOXINE HYDROCHLORIDE
     Indication: Product used for unknown indication
  11. VITAMIN C [Concomitant]
     Active Substance: ASCORBIC ACID
     Indication: Product used for unknown indication
  12. VITAMIN E [Concomitant]
     Active Substance: .ALPHA.-TOCOPHEROL
     Indication: Product used for unknown indication
  13. VITAMIN H [Concomitant]
     Indication: Product used for unknown indication
     Dosage: UNK
  14. LACTULOSE [Concomitant]
     Active Substance: LACTULOSE
     Indication: Product used for unknown indication
     Dosage: UNK
  15. METRONIDAZOLE [Concomitant]
     Active Substance: METRONIDAZOLE
     Indication: Product used for unknown indication
     Dosage: UNK

REACTIONS (1)
  - Rhabdomyolysis [Recovering/Resolving]
